FAERS Safety Report 22362259 (Version 3)
Quarter: 2023Q2

REPORT INFORMATION
  Report Type: Spontaneous
  Country: US (occurrence: US)
  Receive Date: 20230524
  Receipt Date: 20230622
  Transmission Date: 20230721
  Serious: Yes (Other)
  Sender: FDA-Public Use
  Company Number: US-PFIZER INC-202300199120

PATIENT
  Age: 73 Year
  Sex: Male
  Weight: 113.4 kg

DRUGS (1)
  1. VYNDAMAX [Suspect]
     Active Substance: TAFAMIDIS
     Indication: Amyloidosis senile
     Dosage: 61 MG, DAILY
     Dates: start: 20210422

REACTIONS (2)
  - Spinal operation [Unknown]
  - Spinal nerve stimulator implantation [Unknown]

NARRATIVE: CASE EVENT DATE: 20230515
